FAERS Safety Report 12659638 (Version 2)
Quarter: 2016Q3

REPORT INFORMATION
  Report Type: Spontaneous
  Country: US (occurrence: US)
  Receive Date: 20160817
  Receipt Date: 20160830
  Transmission Date: 20161109
  Serious: No
  Sender: FDA-Public Use
  Company Number: US-BAYER-2016-160278

PATIENT
  Age: 1 Year
  Sex: Female

DRUGS (1)
  1. ALEVE [Suspect]
     Active Substance: NAPROXEN SODIUM
     Dosage: 1 DF, ONCE
     Route: 048
     Dates: start: 20160816, end: 20160816

REACTIONS (4)
  - Accidental exposure to product by child [None]
  - Retching [None]
  - Failure of child resistant mechanism for pharmaceutical product [None]
  - Expired product administered [None]

NARRATIVE: CASE EVENT DATE: 20160816
